FAERS Safety Report 14265191 (Version 4)
Quarter: 2018Q1

REPORT INFORMATION
  Report Type: Spontaneous
  Country: IT (occurrence: IT)
  Receive Date: 20171208
  Receipt Date: 20180208
  Transmission Date: 20180508
  Serious: Yes (Hospitalization)
  Sender: FDA-Public Use
  Company Number: IT-BAUSCH-BL-2017-032567

PATIENT
  Age: 41 Year
  Sex: Female

DRUGS (5)
  1. DEPAKIN [Suspect]
     Active Substance: VALPROATE SODIUM
     Indication: BIPOLAR DISORDER
  2. QUETIAPINE. [Suspect]
     Active Substance: QUETIAPINE
     Indication: PERSONALITY DISORDER
     Dosage: AFTER BREAKFAST AND AFTER DINNER
     Route: 048
  3. BROMAZEPAM [Suspect]
     Active Substance: BROMAZEPAM
     Indication: BIPOLAR DISORDER
     Route: 065
  4. DEPAKIN [Suspect]
     Active Substance: VALPROATE SODIUM
     Indication: PERSONALITY DISORDER
     Dosage: GRANULATED, TO BE TAKEN AFTER LUNCH
     Route: 048
  5. LORAZEPAM. [Suspect]
     Active Substance: LORAZEPAM
     Indication: PERSONALITY DISORDER
     Dosage: BEFORE BED
     Route: 048

REACTIONS (3)
  - Medication error [Unknown]
  - Intentional product misuse [Unknown]
  - Syncope [Recovered/Resolved]

NARRATIVE: CASE EVENT DATE: 20170812
